FAERS Safety Report 9837248 (Version 1)
Quarter: 2014Q1

REPORT INFORMATION
  Report Type: Report from Study
  Country: US (occurrence: US)
  Receive Date: 20140123
  Receipt Date: 20140123
  Transmission Date: 20141002
  Serious: Yes (Other)
  Sender: FDA-Public Use
  Company Number: US-PFIZER INC-2014015644

PATIENT
  Age: 54 Year
  Sex: Male

DRUGS (2)
  1. GEMCITABINE HYDROCHLORIDE [Suspect]
     Indication: ADENOCARCINOMA
     Dosage: 600 MG/M2, WEEKLY
  2. DOCETAXEL [Suspect]
     Indication: ADENOCARCINOMA
     Dosage: 60 MG/M2 Q 3 WEEKS X 7 CYCLES

REACTIONS (2)
  - Recall phenomenon [Not Recovered/Not Resolved]
  - Central nervous system necrosis [Not Recovered/Not Resolved]
